FAERS Safety Report 11231271 (Version 6)
Quarter: 2016Q1

REPORT INFORMATION
  Report Type: Report from Study
  Country: US (occurrence: US)
  Receive Date: 20150701
  Receipt Date: 20160105
  Transmission Date: 20160525
  Serious: Yes (Death, Hospitalization, Other)
  Sender: FDA-Public Use
  Company Number: US-BAYER-2015-296600

PATIENT
  Age: 83 Year
  Sex: Male

DRUGS (6)
  1. LORATADINE. [Concomitant]
     Active Substance: LORATADINE
     Dosage: DAILY DOSE 10 MG
     Route: 048
     Dates: start: 2015
  2. PREDNISONE. [Concomitant]
     Active Substance: PREDNISONE
     Dosage: DAILY DOSE 10 MG
     Route: 048
  3. STIVARGA [Suspect]
     Active Substance: REGORAFENIB
     Indication: METASTASES TO LUNG
     Dosage: 80 MG DAILY DOSE (2 TABLETS, DAILY)
     Route: 048
     Dates: start: 20150502, end: 2015
  4. LOVENOX [Concomitant]
     Active Substance: ENOXAPARIN SODIUM
     Indication: THROMBOSIS PROPHYLAXIS
  5. STIVARGA [Suspect]
     Active Substance: REGORAFENIB
     Indication: COLON CANCER
     Dosage: 160 MG DAILY DOSE, 4X40 MG
     Route: 048
     Dates: start: 20150501, end: 201505
  6. STIVARGA [Suspect]
     Active Substance: REGORAFENIB
     Indication: COLON CANCER
     Dosage: 80 MG DAILY
     Route: 048
     Dates: start: 2015, end: 2015

REACTIONS (14)
  - Abdominal pain [None]
  - Nausea [None]
  - Constipation [None]
  - Abdominal hernia [None]
  - Urticaria [Not Recovered/Not Resolved]
  - Therapy cessation [None]
  - Death [Fatal]
  - Dehydration [None]
  - Diarrhoea [None]
  - Small intestinal obstruction [None]
  - Pruritus [Not Recovered/Not Resolved]
  - Pruritus [None]
  - Mechanical ileus [None]
  - Vomiting [None]

NARRATIVE: CASE EVENT DATE: 2015
